FAERS Safety Report 7316159-2 (Version None)
Quarter: 2011Q1

REPORT INFORMATION
  Report Type: 
  Country: None (occurrence: None)
  Receive Date: 20110225
  Receipt Date: 20110217
  Transmission Date: 20110831
  Serious: Yes (Other)
  Sender: FDA-Public Use
  Company Number: FR-PFIZER INC-2011035258

PATIENT
  Age: 5 Year
  Sex: Male

DRUGS (1)
  1. GENOTONORM [Suspect]
     Indication: RENAL FAILURE CHRONIC
     Dosage: 0.9 MG, 1X/DAY
     Dates: start: 20100829

REACTIONS (2)
  - RENAL FAILURE ACUTE [None]
  - PROTEINURIA [None]
